FAERS Safety Report 9478835 (Version 1)
Quarter: 2013Q3

REPORT INFORMATION
  Report Type: Spontaneous
  Country: GB (occurrence: GB)
  Receive Date: 20130827
  Receipt Date: 20130827
  Transmission Date: 20140515
  Serious: Yes (Other)
  Sender: FDA-Public Use
  Company Number: GB-TEVA-427647ISR

PATIENT
  Age: 69 Year
  Sex: Male

DRUGS (1)
  1. AZILECT [Suspect]

REACTIONS (1)
  - Urinary tract infection [Unknown]
